FAERS Safety Report 19801282 (Version 2)
Quarter: 2021Q4

REPORT INFORMATION
  Report Type: Spontaneous
  Country: US (occurrence: US)
  Receive Date: 20210907
  Receipt Date: 20211116
  Transmission Date: 20220303
  Serious: Yes (Other)
  Sender: FDA-Public Use
  Company Number: US-NOVARTISTESTPH-NVSC2021US200992

PATIENT
  Age: 81 Year
  Sex: Male

DRUGS (1)
  1. BEOVU [Suspect]
     Active Substance: BROLUCIZUMAB-DBLL
     Indication: Neovascular age-related macular degeneration
     Dosage: 6 MG, OTHER (3 INITIAL MONTHLY INJECTIONS THENVERY 8-12 WEEKS)
     Route: 047
     Dates: start: 20200528

REACTIONS (2)
  - Retinal vascular occlusion [Not Recovered/Not Resolved]
  - Retinal vasculitis [Not Recovered/Not Resolved]
